FAERS Safety Report 7592340-2 (Version None)
Quarter: 2011Q3

REPORT INFORMATION
  Report Type: 
  Country: None (occurrence: None)
  Receive Date: 20110706
  Receipt Date: 20110701
  Transmission Date: 20111222
  Serious: Yes (Hospitalization)
  Sender: FDA-Public Use
  Company Number: IT-TEVA-288957ISR

PATIENT
  Sex: Male

DRUGS (1)
  1. CISPLATIN [Suspect]

REACTIONS (4)
  - MUCOSAL INFLAMMATION [None]
  - APLASIA [None]
  - HEPATOTOXICITY [None]
  - PYREXIA [None]
